FAERS Safety Report 13523148 (Version 2)
Quarter: 2017Q3

REPORT INFORMATION
  Report Type: Spontaneous
  Country: US (occurrence: US)
  Receive Date: 20170508
  Receipt Date: 20170726
  Transmission Date: 20171127
  Serious: Yes (Other)
  Sender: FDA-Public Use
  Company Number: US-PFIZER INC-2017194544

PATIENT
  Age: 31 Year
  Sex: Male

DRUGS (2)
  1. WYDASE [Suspect]
     Active Substance: HYALURONIDASE
     Dosage: UNK
     Route: 056
  2. LIDOCAINE HCL [Suspect]
     Active Substance: LIDOCAINE HYDROCHLORIDE
     Indication: ANAESTHESIA PROCEDURE
     Dosage: 2 ML, UNK
     Route: 056

REACTIONS (2)
  - Retinal neovascularisation [Recovering/Resolving]
  - Ocular retrobulbar haemorrhage [Unknown]
